FAERS Safety Report 24155601 (Version 1)
Quarter: 2024Q3

REPORT INFORMATION
  Report Type: Report from Study
  Country: US (occurrence: None)
  Receive Date: 20240731
  Receipt Date: 20240731
  Transmission Date: 20241017
  Serious: Yes (Other)
  Sender: ASTRAZENECA
  Company Number: 2021A731255

PATIENT
  Sex: Male

DRUGS (1)
  1. LYNPARZA [Suspect]
     Active Substance: OLAPARIB
     Indication: Prostate cancer
     Route: 048
     Dates: start: 20210910, end: 202111

REACTIONS (4)
  - Constipation [Recovered/Resolved]
  - Renal impairment [Not Recovered/Not Resolved]
  - Flank pain [Not Recovered/Not Resolved]
  - Pain [Unknown]
